FAERS Safety Report 5922958-1 (Version None)
Quarter: 2008Q4

REPORT INFORMATION
  Report Type: 
  Country: None (occurrence: None)
  Receive Date: 20081018
  Receipt Date: 20081007
  Transmission Date: 20090506
  Serious: Yes (Other)
  Sender: FDA-Public Use
  Company Number: FR-PFIZER INC-2006116626

PATIENT
  Sex: Male
  Weight: 86 kg

DRUGS (4)
  1. SU-011,248 [Suspect]
     Indication: RENAL CANCER
     Route: 048
     Dates: start: 20060414, end: 20060920
  2. RAMIPRIL/HYDROCHLOROTHIAZIDE [Concomitant]
     Route: 048
     Dates: start: 19880101, end: 20061101
  3. COAPROVEL [Concomitant]
     Route: 048
     Dates: start: 20061101
  4. PRAZOSIN HCL [Concomitant]
     Route: 048
     Dates: start: 20061101

REACTIONS (1)
  - SINUS BRADYCARDIA [None]
